FAERS Safety Report 11859934 (Version 1)
Quarter: 2015Q4

REPORT INFORMATION
  Report Type: Spontaneous
  Country: FR (occurrence: FR)
  Receive Date: 20151222
  Receipt Date: 20151222
  Transmission Date: 20160305
  Serious: Yes (Hospitalization)
  Sender: FDA-Public Use
  Company Number: FR-009507513-1512FRA009432

PATIENT
  Age: 63 Year
  Sex: Female

DRUGS (7)
  1. PROCORALAN [Concomitant]
     Active Substance: IVABRADINE
     Dosage: 1 DF, BID
  2. LASILIX [Concomitant]
     Active Substance: FUROSEMIDE
     Dosage: 1.5 DF, QAM
  3. CARDENSIEL [Concomitant]
     Active Substance: BISOPROLOL FUMARATE
     Dosage: 10 MG, QAM
  4. ZYLORIC [Suspect]
     Active Substance: ALLOPURINOL
     Dosage: UNK
     Route: 048
     Dates: start: 20150910, end: 20151106
  5. LOXEN [Concomitant]
     Active Substance: NICARDIPINE HYDROCHLORIDE
     Dosage: 50 MG, 1-0-1
  6. INEGY [Suspect]
     Active Substance: EZETIMIBE\SIMVASTATIN
     Dosage: UNK
     Route: 048
     Dates: start: 20150910, end: 20151106
  7. PREVISCAN [Concomitant]
     Active Substance: FLUINDIONE
     Dosage: UNK

REACTIONS (1)
  - Drug reaction with eosinophilia and systemic symptoms [Recovered/Resolved]

NARRATIVE: CASE EVENT DATE: 20151106
